FAERS Safety Report 15530427 (Version 2)
Quarter: 2018Q4

REPORT INFORMATION
  Report Type: Spontaneous
  Country: HU (occurrence: HU)
  Receive Date: 20181018
  Receipt Date: 20181123
  Transmission Date: 20190205
  Serious: Yes (Other)
  Sender: FDA-Public Use
  Company Number: PHHY2018HU127945

PATIENT
  Sex: Male

DRUGS (1)
  1. METHOTREXATE. [Suspect]
     Active Substance: METHOTREXATE
     Indication: SPONDYLOARTHROPATHY
     Dosage: UNK
     Route: 065

REACTIONS (12)
  - Paresis [Recovered/Resolved]
  - Arthralgia [Unknown]
  - Walking disability [Recovering/Resolving]
  - Drug ineffective [Unknown]
  - Weight decreased [Unknown]
  - Muscle atrophy [Recovering/Resolving]
  - Osteoarthritis [Recovering/Resolving]
  - Decreased appetite [Unknown]
  - Muscle contracture [Recovering/Resolving]
  - Cachexia [Unknown]
  - Scoliosis [Unknown]
  - Joint contracture [Recovering/Resolving]

NARRATIVE: CASE EVENT DATE: 201709
